FAERS Safety Report 9486110 (Version 1)
Quarter: 2013Q3

REPORT INFORMATION
  Report Type: Spontaneous
  Country: US (occurrence: None)
  Receive Date: 20130827
  Receipt Date: 20130827
  Transmission Date: 20140515
  Serious: No
  Sender: FDA-Public Use
  Company Number: None

PATIENT
  Sex: Female
  Weight: 53.52 kg

DRUGS (1)
  1. MONTELUKAST SODIUM [Suspect]
     Indication: NASAL CONGESTION
     Dosage: 1 PILL ONCE DAILY TAKEN BY MOUTH
     Route: 048

REACTIONS (7)
  - Headache [None]
  - Nasal congestion [None]
  - Product substitution issue [None]
  - Insomnia [None]
  - Depression [None]
  - Ear pain [None]
  - Rhinitis allergic [None]
